FAERS Safety Report 15993500 (Version 2)
Quarter: 2019Q1

REPORT INFORMATION
  Report Type: Report from Study
  Country: US (occurrence: US)
  Receive Date: 20190222
  Receipt Date: 20190226
  Transmission Date: 20190418
  Serious: Yes (Other)
  Sender: FDA-Public Use
  Company Number: US-ROCHE-2269855

PATIENT
  Age: 55 Year
  Sex: Female
  Weight: 68.1 kg

DRUGS (2)
  1. XOLAIR [Suspect]
     Active Substance: OMALIZUMAB
     Indication: ASTHMA
  2. XOLAIR [Suspect]
     Active Substance: OMALIZUMAB
     Indication: RESTRICTIVE PULMONARY DISEASE
     Route: 058
     Dates: start: 2015

REACTIONS (2)
  - Breast cancer [Recovered/Resolved]
  - Blood oestrogen increased [Not Recovered/Not Resolved]

NARRATIVE: CASE EVENT DATE: 20180608
